FAERS Safety Report 16365718 (Version 1)
Quarter: 2019Q2

REPORT INFORMATION
  Report Type: Spontaneous
  Country: US (occurrence: US)
  Receive Date: 20190422
  Receipt Date: 20190422
  Transmission Date: 20190711
  Serious: Yes (Life-Threatening, Hospitalization)
  Sender: FDA-Public Use
  Company Number: None

PATIENT
  Age: 65 Year
  Sex: Male
  Weight: 81.65 kg

DRUGS (7)
  1. PLAVIX [Concomitant]
     Active Substance: CLOPIDOGREL BISULFATE
  2. LOPRESSOR [Concomitant]
     Active Substance: METOPROLOL TARTRATE
  3. ELIQUIS [Concomitant]
     Active Substance: APIXABAN
  4. ASA [Concomitant]
     Active Substance: ASPIRIN
  5. BRILINTA [Suspect]
     Active Substance: TICAGRELOR
     Indication: STENT PLACEMENT
     Dosage: ?          QUANTITY:1 PILL;?
     Route: 048
     Dates: start: 20181008, end: 20190112
  6. AMIODARONE [Concomitant]
     Active Substance: AMIODARONE
  7. LIPITOR [Concomitant]
     Active Substance: ATORVASTATIN CALCIUM

REACTIONS (2)
  - Ventricular tachycardia [None]
  - Atrial fibrillation [None]

NARRATIVE: CASE EVENT DATE: 20190112
